FAERS Safety Report 16570431 (Version 1)
Quarter: 2019Q3

REPORT INFORMATION
  Report Type: Spontaneous
  Country: US (occurrence: US)
  Receive Date: 20190531
  Receipt Date: 20190531
  Transmission Date: 20191004
  Serious: Yes (Hospitalization)
  Sender: FDA-Public Use
  Company Number: None

PATIENT
  Age: 61 Year
  Sex: Female

DRUGS (3)
  1. CAPECITABINE 500MG [Suspect]
     Active Substance: CAPECITABINE
     Indication: ANAL CANCER
     Dosage: ?          OTHER DOSE:3 TABLETS;?
     Route: 048
     Dates: start: 20190422
  2. LORAZEPAM. [Concomitant]
     Active Substance: LORAZEPAM
  3. CAPECITABINE 150MG [Suspect]
     Active Substance: CAPECITABINE
     Indication: ANAL CANCER
     Dosage: ?          OTHER DOSE:2 TABLETS;?
     Route: 048

REACTIONS (1)
  - Internal haemorrhage [None]
